FAERS Safety Report 10192911 (Version 1)
Quarter: 2014Q2

REPORT INFORMATION
  Report Type: Report from Study
  Country: AR (occurrence: AR)
  Receive Date: 20140523
  Receipt Date: 20140523
  Transmission Date: 20141212
  Serious: Yes (Death)
  Sender: FDA-Public Use
  Company Number: AR-BAXTER-2014BAX024590

PATIENT
  Sex: 0

DRUGS (1)
  1. KIOVIG / INMUNOGLOBULINA HUMANA NORMAL [Suspect]
     Indication: ACQUIRED HAEMOPHILIA
     Route: 065

REACTIONS (1)
  - Gastrointestinal haemorrhage [Fatal]
